FAERS Safety Report 10166685 (Version 1)
Quarter: 2014Q2

REPORT INFORMATION
  Report Type: Spontaneous
  Country: US (occurrence: None)
  Receive Date: 20140509
  Receipt Date: 20140509
  Transmission Date: 20141212
  Serious: No
  Sender: FDA-Public Use
  Company Number: None

PATIENT
  Age: 60 Year
  Sex: Female

DRUGS (2)
  1. SOVALDI [Suspect]
     Dates: start: 20140321
  2. RIBAVIRIN [Concomitant]

REACTIONS (7)
  - Musculoskeletal chest pain [None]
  - Cardiac flutter [None]
  - Lymphadenopathy [None]
  - Pharyngeal oedema [None]
  - Haemoglobin decreased [None]
  - Local swelling [None]
  - Stomatitis [None]
